FAERS Safety Report 15028736 (Version 1)
Quarter: 2018Q2

REPORT INFORMATION
  Report Type: Spontaneous
  Country: BR (occurrence: BR)
  Receive Date: 20180619
  Receipt Date: 20180619
  Transmission Date: 20180711
  Serious: Yes (Hospitalization, Other)
  Sender: FDA-Public Use
  Company Number: BR-GLAXOSMITHKLINE-BR2018GSK107875

PATIENT
  Sex: Female
  Weight: 11 kg

DRUGS (3)
  1. AEROLIN [Suspect]
     Active Substance: ALBUTEROL
     Indication: ASTHMA
     Dosage: 4 PUFF(S), Z
     Route: 055
     Dates: start: 2017
  2. SERETIDE [Suspect]
     Active Substance: FLUTICASONE PROPIONATE\SALMETEROL XINAFOATE
     Indication: ASTHMA PROPHYLAXIS
     Dosage: 1 PUFF(S), BID
     Route: 055
  3. PREDSIM [Suspect]
     Active Substance: PREDNISOLONE
     Indication: ASTHMA
     Dosage: 4 ML, QD
     Route: 048

REACTIONS (4)
  - Overdose [Not Recovered/Not Resolved]
  - Hospitalisation [Recovered/Resolved]
  - Drug prescribing error [Recovered/Resolved]
  - Inappropriate schedule of drug administration [Not Recovered/Not Resolved]
